FAERS Safety Report 8590151-2 (Version None)
Quarter: 2012Q3

REPORT INFORMATION
  Report Type: 
  Country: None (occurrence: None)
  Receive Date: 20120813
  Receipt Date: 20120803
  Transmission Date: 20120928
  Serious: No
  Sender: FDA-Public Use
  Company Number: US-009507513-1207USA002735

PATIENT

DRUGS (1)
  1. PROPECIA [Suspect]
     Indication: ALOPECIA
     Dosage: 1 MG, QD
     Route: 048
     Dates: start: 20021115, end: 20110101

REACTIONS (3)
  - ANTISOCIAL BEHAVIOUR [None]
  - ERECTILE DYSFUNCTION [None]
  - LIBIDO DECREASED [None]
